FAERS Safety Report 13066938 (Version 8)
Quarter: 2019Q1

REPORT INFORMATION
  Report Type: Report from Study
  Country: JP (occurrence: JP)
  Receive Date: 20161227
  Receipt Date: 20190322
  Transmission Date: 20190417
  Serious: Yes (Death, Hospitalization)
  Sender: FDA-Public Use
  Company Number: JP-VIFOR (INTERNATIONAL) INC.-VIT-2016-09022

PATIENT
  Age: 62 Year
  Sex: Female
  Weight: 57.6 kg

DRUGS (25)
  1. KN NO.1 [Concomitant]
     Dates: start: 20170815, end: 20171101
  2. OTSUKA SEISHOKU [Concomitant]
     Dates: start: 20170829, end: 20170905
  3. MIRCERA [Suspect]
     Active Substance: METHOXY POLYETHYLENE GLYCOL-EPOETIN BETA
     Indication: NEPHROGENIC ANAEMIA
     Route: 040
     Dates: end: 20160804
  4. FOSRENOL [Concomitant]
     Active Substance: LANTHANUM CARBONATE
     Indication: HYPERPHOSPHATAEMIA
     Route: 048
     Dates: end: 20171019
  5. OXAROL [Concomitant]
     Active Substance: MAXACALCITOL
     Indication: HYPERPARATHYROIDISM SECONDARY
  6. SODIUM CHLORIDE. [Concomitant]
     Active Substance: SODIUM CHLORIDE
     Dates: start: 20170909, end: 20171031
  7. ALBUMIN [Concomitant]
     Active Substance: ALBUMIN HUMAN
     Dates: start: 20170911, end: 20171101
  8. MIRCERA [Suspect]
     Active Substance: METHOXY POLYETHYLENE GLYCOL-EPOETIN BETA
     Route: 042
     Dates: start: 20160805
  9. MEROPEN [Concomitant]
     Active Substance: MEROPENEM
     Dosage: 0.5 V
     Dates: start: 20170815, end: 20171004
  10. ATARAX-P [Concomitant]
     Active Substance: HYDROXYZINE HYDROCHLORIDE
     Dates: start: 20170829, end: 20170905
  11. MINOCYCLINE HYDROCHLORIDE. [Concomitant]
     Active Substance: MINOCYCLINE HYDROCHLORIDE
     Dates: start: 20170909, end: 20171031
  12. NEXIUM [Concomitant]
     Active Substance: ESOMEPRAZOLE MAGNESIUM
     Indication: CHRONIC GASTRITIS
     Route: 048
     Dates: end: 20171019
  13. TRAZENTA [Concomitant]
     Active Substance: LINAGLIPTIN
     Indication: DIABETES MELLITUS
     Route: 048
     Dates: end: 20171019
  14. CHINESE MEDICINE [Concomitant]
     Active Substance: UNSPECIFIED INGREDIENT
     Indication: MUSCLE SPASMS
     Route: 048
     Dates: end: 20171019
  15. ALOSENN [Concomitant]
     Active Substance: SENNA LEAF
     Indication: CONSTIPATION
     Route: 048
     Dates: start: 20161111, end: 20161118
  16. LOCOID [Concomitant]
     Active Substance: HYDROCORTISONE BUTYRATE
     Indication: DERMATITIS
     Route: 050
     Dates: start: 20170410, end: 20170510
  17. LENDORMIN D [Concomitant]
     Active Substance: BROTIZOLAM
     Indication: INSOMNIA
     Route: 048
     Dates: start: 20170809, end: 20171019
  18. METHADERM [Concomitant]
     Indication: DERMATITIS
     Route: 050
     Dates: start: 20170410, end: 20170510
  19. CALONAL [Concomitant]
     Active Substance: ACETAMINOPHEN
     Route: 048
     Dates: start: 20170814, end: 20171101
  20. SOSEGON [Concomitant]
     Active Substance: PENTAZOCINE
     Dates: start: 20170829, end: 20170905
  21. VELPHORO [Suspect]
     Active Substance: FERRIC OXYHYDROXIDE
     Indication: HYPERPHOSPHATAEMIA
     Route: 048
     Dates: start: 20160516, end: 20171019
  22. HIRUDOID [Concomitant]
     Active Substance: GLYCOSAMINOGLYCANS
     Indication: DRY SKIN
     Route: 050
     Dates: start: 20160627
  23. DERMOVATE [Concomitant]
     Active Substance: CLOBETASOL
     Indication: DERMATITIS
     Route: 050
     Dates: start: 20160627, end: 20170410
  24. ANTEBATE [Concomitant]
     Active Substance: BETAMETHASONE DIPROPIONATE
     Indication: DERMATITIS
     Route: 050
     Dates: start: 20170410, end: 20170510
  25. SODIUM CHLORIDE. [Concomitant]
     Active Substance: SODIUM CHLORIDE
     Dates: start: 20170815, end: 20171004

REACTIONS (12)
  - Hypocalcaemia [Recovering/Resolving]
  - Nasopharyngitis [Recovered/Resolved]
  - Hypocalcaemia [Recovered/Resolved]
  - Red blood cell count increased [Recovered/Resolved]
  - Renal cyst infection [Recovering/Resolving]
  - Rhinitis [Recovered/Resolved]
  - Haematocrit increased [Recovered/Resolved]
  - Headache [Recovering/Resolving]
  - Hepatic cyst infection [Fatal]
  - Haemoglobin increased [Recovered/Resolved]
  - Hepatic enzyme increased [Not Recovered/Not Resolved]
  - Condition aggravated [Recovered/Resolved]

NARRATIVE: CASE EVENT DATE: 20160610
